FAERS Safety Report 8920909 (Version 1)
Quarter: 2012Q4

REPORT INFORMATION
  Report Type: 
  Country: US (occurrence: US)
  Receive Date: 20121123
  Receipt Date: 20121123
  Transmission Date: 20130627
  Serious: Yes (Other)
  Sender: FDA-Public Use
  Company Number: US-AMGEN-USASP2012074967

PATIENT
  Age: 61 Year
  Sex: Male

DRUGS (2)
  1. PROLIA [Suspect]
     Indication: BONE LOSS
     Dosage: UNK
     Dates: start: 201202, end: 201208
  2. ANTINEOPLASTIC AGENTS [Concomitant]
     Indication: PROSTATE CANCER

REACTIONS (1)
  - Metastases to bone [Unknown]
